FAERS Safety Report 7003491-5 (Version None)
Quarter: 2010Q3

REPORT INFORMATION
  Report Type: 
  Country: None (occurrence: None)
  Receive Date: 20100916
  Receipt Date: 20100902
  Transmission Date: 20110219
  Serious: Yes (Other)
  Sender: FDA-Public Use
  Company Number: 2010S1000768

PATIENT
  Age: 70 Year
  Sex: Female
  Weight: 58 kg

DRUGS (2)
  1. LIVALO [Suspect]
     Indication: HYPERCHOLESTEROLAEMIA
     Dosage: 1 MG; 1X; PO
     Route: 048
     Dates: start: 20050311, end: 20090908
  2. BLOPRESS [Concomitant]

REACTIONS (2)
  - LYMPHADENOPATHY [None]
  - METASTASES TO LYMPH NODES [None]
